FAERS Safety Report 7030467-4 (Version None)
Quarter: 2010Q4

REPORT INFORMATION
  Report Type: 
  Country: None (occurrence: None)
  Receive Date: 20101001
  Receipt Date: 20090901
  Transmission Date: 20110411
  Serious: Yes (Hospitalization, Other)
  Sender: FDA-Public Use
  Company Number: 2009SP023295

PATIENT
  Age: 51 Year
  Sex: Female
  Weight: 97.0698 kg

DRUGS (5)
  1. NUVARING [Suspect]
     Indication: CONTRACEPTION
     Dosage: 1 DF
     Dates: start: 20060101, end: 20070701
  2. NUVARING [Suspect]
     Indication: HEADACHE
     Dosage: 1 DF
     Dates: start: 20060101, end: 20070701
  3. NUVARING [Suspect]
     Indication: MENOPAUSAL SYMPTOMS
     Dosage: 1 DF
     Dates: start: 20060101, end: 20070701
  4. FROVA [Concomitant]
  5. ACETAMINOPHEN [Concomitant]

REACTIONS (8)
  - EMOTIONAL DISORDER [None]
  - FEAR [None]
  - MENSTRUAL DISORDER [None]
  - MENTAL DISORDER [None]
  - NEPHROLITHIASIS [None]
  - OVARIAN CYST [None]
  - PULMONARY EMBOLISM [None]
  - SLEEP DISORDER [None]
